FAERS Safety Report 10164853 (Version 1)
Quarter: 2014Q2

REPORT INFORMATION
  Report Type: Spontaneous
  Country: US (occurrence: US)
  Receive Date: 20140510
  Receipt Date: 20140510
  Transmission Date: 20141212
  Serious: Yes (Hospitalization)
  Sender: FDA-Public Use
  Company Number: US-BRISTOL-MYERS SQUIBB COMPANY-20513388

PATIENT
  Age: 58 Year
  Sex: Female
  Weight: 90.25 kg

DRUGS (1)
  1. BYETTA [Suspect]
     Dosage: DOSE REDUCED TO 5MCG

REACTIONS (3)
  - Blood glucose decreased [Unknown]
  - Weight decreased [Unknown]
  - Gastrointestinal disorder [Unknown]
